FAERS Safety Report 5056473-7 (Version None)
Quarter: 2006Q3

REPORT INFORMATION
  Report Type: 
  Country: None (occurrence: None)
  Receive Date: 20060720
  Receipt Date: 20060713
  Transmission Date: 20061208
  Serious: Yes (Hospitalization)
  Sender: FDA-Public Use
  Company Number: NSADSS2002010807

PATIENT
  Age: 79 Year
  Sex: Female

DRUGS (7)
  1. REMINYL [Suspect]
     Indication: DRUG USE FOR UNKNOWN INDICATION
     Route: 048
  2. RISPERDAL [Suspect]
     Indication: DRUG USE FOR UNKNOWN INDICATION
     Route: 048
  3. PAROXETINE HCL [Suspect]
     Indication: DEPRESSION
  4. AMLODIPINE [Concomitant]
  5. DOCUSATE SODIUM [Concomitant]
  6. CELECOXIB [Concomitant]
  7. CALCIUM CITRATE [Concomitant]

REACTIONS (6)
  - ANAEMIA [None]
  - HYPOTHERMIA [None]
  - LETHARGY [None]
  - MENTAL STATUS CHANGES [None]
  - ORAL INTAKE REDUCED [None]
  - THROMBOCYTOPENIA [None]
